FAERS Safety Report 12135750 (Version 1)
Quarter: 2016Q1

REPORT INFORMATION
  Report Type: Spontaneous
  Country: RO (occurrence: RO)
  Receive Date: 20160302
  Receipt Date: 20160302
  Transmission Date: 20160526
  Serious: Yes (Other)
  Sender: FDA-Public Use
  Company Number: RO-AMGEN-ROUSP2016024299

PATIENT
  Age: 74 Year
  Sex: Female

DRUGS (1)
  1. ENBREL [Suspect]
     Active Substance: ETANERCEPT
     Indication: RHEUMATOID ARTHRITIS
     Dosage: 50 MG, UNK
     Route: 065

REACTIONS (4)
  - Post procedural complication [Not Recovered/Not Resolved]
  - Post procedural infection [Not Recovered/Not Resolved]
  - Gangrene [Not Recovered/Not Resolved]
  - Wound dehiscence [Not Recovered/Not Resolved]
